FAERS Safety Report 12492496 (Version 1)
Quarter: 2016Q2

REPORT INFORMATION
  Report Type: Spontaneous
  Country: US (occurrence: None)
  Receive Date: 20160622
  Receipt Date: 20160622
  Transmission Date: 20160815
  Serious: Yes (Other)
  Sender: FDA-Public Use
  Company Number: None

PATIENT
  Age: 57 Year
  Sex: Male
  Weight: 62 kg

DRUGS (1)
  1. OXALIPLATIN, 5MG/ML HOSPIRA [Suspect]
     Active Substance: OXALIPLATIN
     Route: 041
     Dates: start: 20160504, end: 20160608

REACTIONS (2)
  - Dysphagia [None]
  - Unevaluable event [None]

NARRATIVE: CASE EVENT DATE: 20160608
